FAERS Safety Report 16684331 (Version 2)
Quarter: 2019Q3

REPORT INFORMATION
  Report Type: Spontaneous
  Country: BE (occurrence: BE)
  Receive Date: 20190808
  Receipt Date: 20190809
  Transmission Date: 20191004
  Serious: Yes (Other)
  Sender: FDA-Public Use
  Company Number: BE-TEVA-2019-BE-1090343

PATIENT
  Sex: Male
  Weight: 105 kg

DRUGS (2)
  1. PANTOPRAZOL [Suspect]
     Active Substance: PANTOPRAZOLE SODIUM
     Indication: REFLUX GASTRITIS
     Dosage: 1TABLET PER DAG
     Route: 048
     Dates: start: 20190501, end: 20190530
  2. UNI DIAMICRON [Suspect]
     Active Substance: GLICLAZIDE
     Indication: DIABETES MELLITUS
     Dosage: 2X TABLET ^S MORGENS??UNI DIAMICRON 60 MG
     Route: 048
     Dates: start: 20190501, end: 20190531

REACTIONS (3)
  - Dermatitis bullous [Recovering/Resolving]
  - Pruritus [Recovering/Resolving]
  - Diarrhoea [Recovering/Resolving]

NARRATIVE: CASE EVENT DATE: 20190501
